FAERS Safety Report 25439951 (Version 2)
Quarter: 2025Q2

REPORT INFORMATION
  Report Type: Report from Study
  Country: CA (occurrence: CA)
  Receive Date: 20250616
  Receipt Date: 20250626
  Transmission Date: 20250717
  Serious: Yes (Other)
  Sender: HLS THERAPEUTICS
  Company Number: CA-HLS-202501470

PATIENT
  Age: 44 Year
  Sex: Male

DRUGS (1)
  1. CLOZARIL [Suspect]
     Active Substance: CLOZAPINE
     Indication: Product used for unknown indication
     Route: 048
     Dates: start: 20210402

REACTIONS (5)
  - Altered state of consciousness [Recovered/Resolved]
  - Pyrexia [Recovered/Resolved]
  - General physical health deterioration [Recovered/Resolved]
  - Thrombocytopenia [Not Recovered/Not Resolved]
  - Vomiting [Unknown]

NARRATIVE: CASE EVENT DATE: 20250602
